FAERS Safety Report 24112907 (Version 2)
Quarter: 2025Q1

REPORT INFORMATION
  Report Type: Report from Study
  Country: US (occurrence: US)
  Receive Date: 20240719
  Receipt Date: 20250312
  Transmission Date: 20250409
  Serious: Yes (Hospitalization, Other)
  Sender: NOVARTIS
  Company Number: US-002147023-NVSC2024US146533

PATIENT
  Sex: Female

DRUGS (2)
  1. PIQRAY [Suspect]
     Active Substance: ALPELISIB
     Indication: Product used for unknown indication
     Dosage: 150 MG, BID
     Route: 048
     Dates: start: 20210105
  2. PIQRAY [Suspect]
     Active Substance: ALPELISIB
     Dosage: 150 MG, BID (300 MG)
     Route: 048

REACTIONS (3)
  - Pneumonia [Unknown]
  - Malignant neoplasm progression [Unknown]
  - Metastasis [Unknown]
